FAERS Safety Report 5778004-6 (Version None)
Quarter: 2008Q2

REPORT INFORMATION
  Report Type: 
  Country: None (occurrence: None)
  Receive Date: 20080617
  Receipt Date: 20080608
  Transmission Date: 20081010
  Serious: Yes (Hospitalization)
  Sender: FDA-Public Use
  Company Number: CHPA2008US09611

PATIENT

DRUGS (1)
  1. TRIAMINIC FLU COUGH FEVER NO PSE (NCH)(ACETAMINOPHEN (PARACETAMOL),  C [Suspect]
     Dosage: ONCE/SINGLE, ORAL
     Route: 048
     Dates: start: 20080607, end: 20080607

REACTIONS (3)
  - ACCIDENTAL DRUG INTAKE BY CHILD [None]
  - ANALGESIC DRUG LEVEL INCREASED [None]
  - NAUSEA [None]
